FAERS Safety Report 17928071 (Version 1)
Quarter: 2020Q2

REPORT INFORMATION
  Report Type: Spontaneous
  Country: JP (occurrence: JP)
  Receive Date: 20200623
  Receipt Date: 20200623
  Transmission Date: 20200714
  Serious: Yes (Other)
  Sender: FDA-Public Use
  Company Number: JP-GLAXOSMITHKLINE-JP2020JPN104673

PATIENT
  Age: 68 Year
  Sex: Male

DRUGS (5)
  1. CERNILTON [Concomitant]
     Active Substance: HERBALS
     Dosage: UNK
  2. ZACRAS [Concomitant]
     Active Substance: AMLODIPINE BESYLATE\AZILSARTAN
     Dosage: UNK
  3. RELVAR ELLIPTA [Suspect]
     Active Substance: FLUTICASONE FUROATE\VILANTEROL TRIFENATATE
     Indication: ASTHMA
     Dosage: 100 ?G
     Route: 055
     Dates: start: 20200311
  4. URIEF [Concomitant]
     Active Substance: SILODOSIN
     Dosage: UNK
  5. AVOLVE [Concomitant]
     Active Substance: DUTASTERIDE
     Dosage: UNK

REACTIONS (2)
  - Oropharyngeal discomfort [Unknown]
  - Oesophageal candidiasis [Unknown]

NARRATIVE: CASE EVENT DATE: 20200521
